FAERS Safety Report 12505564 (Version 1)
Quarter: 2016Q2

REPORT INFORMATION
  Report Type: Spontaneous
  Country: JP (occurrence: JP)
  Receive Date: 20160628
  Receipt Date: 20160628
  Transmission Date: 20160815
  Serious: Yes (Hospitalization, Other)
  Sender: FDA-Public Use
  Company Number: JP-JNJFOC-20160417386

PATIENT
  Age: 88 Year
  Sex: Female
  Weight: 43 kg

DRUGS (14)
  1. PREDNISOLONE. [Suspect]
     Active Substance: PREDNISOLONE
     Indication: PRODUCT USED FOR UNKNOWN INDICATION
     Route: 048
  2. BAKTAR [Concomitant]
     Active Substance: SULFAMETHOXAZOLE\TRIMETHOPRIM
     Dosage: DOSE: 1DF
     Route: 048
  3. XARELTO [Suspect]
     Active Substance: RIVAROXABAN
     Indication: ATRIAL TACHYCARDIA
     Route: 048
     Dates: end: 20160411
  4. ALOSENN [Concomitant]
     Active Substance: SENNA LEAF
     Route: 048
  5. ULCERLMIN [Concomitant]
     Active Substance: SUCRALFATE
     Route: 048
  6. FURSULTIAMINE [Concomitant]
     Active Substance: FURSULTIAMINE
     Route: 048
  7. MAGNESIUM OXIDE. [Concomitant]
     Active Substance: MAGNESIUM OXIDE
     Route: 048
  8. LENDORMIN DAINIPPO [Concomitant]
     Active Substance: BROTIZOLAM
     Route: 048
  9. TEPRENONE [Concomitant]
     Active Substance: TEPRENONE
     Route: 048
  10. NORVASC [Concomitant]
     Active Substance: AMLODIPINE BESYLATE
     Route: 048
  11. MAINTATE [Concomitant]
     Active Substance: BISOPROLOL FUMARATE
     Route: 048
  12. GASTER [Concomitant]
     Active Substance: FAMOTIDINE
     Route: 048
     Dates: end: 20160411
  13. XARELTO [Suspect]
     Active Substance: RIVAROXABAN
     Indication: CEREBROVASCULAR ACCIDENT PROPHYLAXIS
     Route: 048
     Dates: end: 20160411
  14. DEPAS [Concomitant]
     Active Substance: ETIZOLAM
     Route: 048

REACTIONS (2)
  - Anaemia [Recovered/Resolved]
  - Gastritis haemorrhagic [Recovered/Resolved]

NARRATIVE: CASE EVENT DATE: 20151215
